FAERS Safety Report 8812151 (Version 3)
Quarter: 2015Q2

REPORT INFORMATION
  Report Type: Report from Study
  Country: US (occurrence: US)
  Receive Date: 20120927
  Receipt Date: 20150401
  Transmission Date: 20150821
  Serious: Yes (Hospitalization, Other)
  Sender: FDA-Public Use
  Company Number: US-ROCHE-1127794

PATIENT
  Age: 59 Year
  Sex: Male
  Weight: 78.4 kg

DRUGS (30)
  1. AVASTIN [Suspect]
     Active Substance: BEVACIZUMAB
     Indication: BONE CANCER
     Dosage: ON 11/SEP/2008, 02/OCT/2008 AND 06/NOV/2008 , HE RECEIVED 1290 MG.
     Route: 042
  2. PEGFILGRASTIM [Concomitant]
     Active Substance: PEGFILGRASTIM
     Route: 058
  3. LUPRON [Concomitant]
     Active Substance: LEUPROLIDE ACETATE
  4. COUMADIN [Concomitant]
     Active Substance: WARFARIN SODIUM
  5. TAXOTERE [Concomitant]
     Active Substance: DOCETAXEL
     Route: 065
  6. ZOMETA [Concomitant]
     Active Substance: ZOLEDRONIC ACID
     Route: 042
  7. MITOXANTRONE [Concomitant]
     Active Substance: MITOXANTRONE HYDROCHLORIDE
     Route: 065
  8. ACIDOPHILUS [Concomitant]
     Active Substance: LACTOBACILLUS ACIDOPHILUS
     Route: 048
  9. ZOSYN [Concomitant]
     Active Substance: PIPERACILLIN SODIUM\TAZOBACTAM SODIUM
  10. PREDNISONE. [Concomitant]
     Active Substance: PREDNISONE
     Route: 065
  11. MS CONTIN [Concomitant]
     Active Substance: MORPHINE SULFATE
     Route: 048
  12. DILAUDID [Concomitant]
     Active Substance: HYDROMORPHONE HYDROCHLORIDE
     Indication: PAIN
     Dosage: P.R.N
     Route: 065
  13. LOVENOX [Concomitant]
     Active Substance: ENOXAPARIN SODIUM
     Route: 058
  14. IRON SULFATE [Concomitant]
     Active Substance: FERROUS SULFATE ANHYDROUS
     Route: 065
  15. LEVAQUIN [Concomitant]
     Active Substance: LEVOFLOXACIN
     Route: 048
  16. SENOKOT [Concomitant]
     Active Substance: SENNOSIDES
     Route: 065
  17. VICODIN [Concomitant]
     Active Substance: ACETAMINOPHEN\HYDROCODONE BITARTRATE
  18. THALIDOMIDE [Concomitant]
     Active Substance: THALIDOMIDE
     Route: 048
  19. LORAZEPAM. [Concomitant]
     Active Substance: LORAZEPAM
     Dosage: PRN
     Route: 065
  20. AVASTIN [Suspect]
     Active Substance: BEVACIZUMAB
     Route: 042
  21. LACTULOSE. [Concomitant]
     Active Substance: LACTULOSE
     Route: 065
  22. AVASTIN [Suspect]
     Active Substance: BEVACIZUMAB
     Indication: PROSTATE CANCER
     Dosage: ON 05/AUG/2008, HE RECEIVED 1497 MG (15 MG/KG) IV BEVACIZUMAB
     Route: 042
     Dates: start: 20080717
  23. DECADRON [Concomitant]
     Active Substance: DEXAMETHASONE
     Route: 042
  24. CYCLOPHOSPHAMIDE. [Concomitant]
     Active Substance: CYCLOPHOSPHAMIDE
     Route: 065
     Dates: start: 200810
  25. TAGAMET [Concomitant]
     Active Substance: CIMETIDINE
     Route: 065
  26. AVASTIN [Suspect]
     Active Substance: BEVACIZUMAB
     Indication: BONE CANCER
     Dosage: ON 20/NOV/2008 AND 04/DEC/2008 SHE RECEIVED 805 MG (10 MG/KG) OF BEVACIZUMAB.
     Route: 042
  27. KETOCONAZOLE. [Concomitant]
     Active Substance: KETOCONAZOLE
  28. ANZEMET [Concomitant]
     Active Substance: DOLASETRON MESYLATE
     Route: 042
  29. TYLENOL [Concomitant]
     Active Substance: ACETAMINOPHEN
     Route: 048
  30. BENADRYL [Concomitant]
     Active Substance: DIPHENHYDRAMINE HYDROCHLORIDE
     Route: 048

REACTIONS (16)
  - Pneumonia [Unknown]
  - Muscle spasms [Unknown]
  - Off label use [Unknown]
  - Urticaria [Unknown]
  - Heart rate irregular [Unknown]
  - Malaise [Unknown]
  - Fatigue [Unknown]
  - Metastasis [Unknown]
  - Disease progression [Unknown]
  - Night sweats [Unknown]
  - Pyrexia [Unknown]
  - Back pain [Unknown]
  - Pancytopenia [Unknown]
  - Dyspnoea exertional [Unknown]
  - Pain [Unknown]
  - Anaemia [Unknown]

NARRATIVE: CASE EVENT DATE: 20081020
